FAERS Safety Report 8215729-7 (Version None)
Quarter: 2012Q1

REPORT INFORMATION
  Report Type: 
  Country: None (occurrence: None)
  Receive Date: 20120316
  Receipt Date: 20120312
  Transmission Date: 20120608
  Serious: Yes (Death, Hospitalization, Other)
  Sender: FDA-Public Use
  Company Number: US-ROCHE-785436

PATIENT
  Sex: Female
  Weight: 66.4 kg

DRUGS (1)
  1. XELODA [Suspect]
     Indication: BREAST CANCER METASTATIC
     Route: 048
     Dates: start: 20110301, end: 20110516

REACTIONS (4)
  - DEATH [None]
  - HYPOKALAEMIA [None]
  - DEHYDRATION [None]
  - METASTASES TO LIVER [None]
